FAERS Safety Report 8811407 (Version 2)
Quarter: 2012Q4

REPORT INFORMATION
  Report Type: 
  Country: US (occurrence: US)
  Receive Date: 20120927
  Receipt Date: 20121109
  Transmission Date: 20130627
  Serious: Yes (Other)
  Sender: FDA-Public Use
  Company Number: US-PFIZER INC-2012236921

PATIENT
  Age: 54 Year
  Sex: Male
  Weight: 79.37 kg

DRUGS (2)
  1. VIAGRA [Suspect]
     Indication: ERECTILE DYSFUNCTION
     Dosage: 100 mg, as needed
     Route: 048
     Dates: start: 2009
  2. VIAGRA [Suspect]
     Dosage: 50 mg, as needed
     Route: 048
     Dates: end: 2010

REACTIONS (1)
  - Prostate cancer [Recovering/Resolving]
